FAERS Safety Report 9397271 (Version 4)
Quarter: 2013Q4

REPORT INFORMATION
  Report Type: Spontaneous
  Country: IT (occurrence: IT)
  Receive Date: 20130712
  Receipt Date: 20131213
  Transmission Date: 20140711
  Serious: Yes (Other)
  Sender: FDA-Public Use
  Company Number: IT-VERTEX PHARMACEUTICALS INC-2013-007859

PATIENT
  Age: 73 Year
  Sex: Male
  Weight: 85 kg

DRUGS (4)
  1. INCIVO [Suspect]
     Indication: CHRONIC HEPATITIS C
     Dosage: 2250 MG, QD, TABLET
     Route: 048
     Dates: start: 20130424, end: 20130525
  2. PEG INTRON [Suspect]
     Indication: CHRONIC HEPATITIS C
     Dosage: 120 ?G, QW
     Route: 058
     Dates: start: 20130324, end: 20130522
  3. COPEGUS [Suspect]
     Indication: CHRONIC HEPATITIS C
     Dosage: 1200 MG, QD
     Route: 048
     Dates: start: 20130424, end: 20130525
  4. MICARDIS [Concomitant]
     Indication: HYPERTENSION
     Dosage: DOSAGE FORM: TABLETS
     Route: 048
     Dates: start: 20120101

REACTIONS (3)
  - White blood cell count decreased [Unknown]
  - Anaemia [Recovered/Resolved]
  - Presyncope [Recovered/Resolved]
